FAERS Safety Report 7496220-2 (Version None)
Quarter: 2011Q2

REPORT INFORMATION
  Report Type: 
  Country: None (occurrence: None)
  Receive Date: 20110523
  Receipt Date: 20110511
  Transmission Date: 20111010
  Serious: Yes (Hospitalization, Other)
  Sender: FDA-Public Use
  Company Number: JP-AMGEN-US404580

PATIENT
  Age: 74 Year
  Sex: Female
  Weight: 50 kg

DRUGS (15)
  1. ENBREL [Suspect]
     Indication: RHEUMATOID ARTHRITIS
     Dosage: 50 MG, QWK
     Route: 058
     Dates: start: 20100122, end: 20100323
  2. THYRADIN [Concomitant]
     Dosage: 100 A?G, QD
     Route: 048
     Dates: end: 20100430
  3. GANCICLOVIR [Suspect]
     Dosage: 225 MG X 2, UNK
     Route: 042
     Dates: start: 20100501, end: 20100609
  4. RANITIDINE HYDROCHLORIDE [Concomitant]
     Dosage: 300 MG, QD
     Route: 048
     Dates: end: 20100430
  5. ETODOLAC [Suspect]
     Dosage: 400 MG, QD
     Route: 048
     Dates: start: 20100215, end: 20100429
  6. PREDNISOLONE [Concomitant]
     Dosage: 5 MG, QD
     Route: 048
     Dates: end: 20100214
  7. PREDNISOLONE [Concomitant]
     Dosage: 4 MG, QD
     Route: 048
     Dates: start: 20100215, end: 20100314
  8. RIMATIL [Concomitant]
     Dosage: UNK UNK, QD
     Route: 048
     Dates: end: 20100430
  9. BREDININ [Concomitant]
     Dosage: UNK
     Route: 048
     Dates: end: 20100430
  10. ALFAROL [Concomitant]
     Dosage: .5 A?G, QD
     Route: 048
     Dates: end: 20100430
  11. ERYTHROMYCIN [Concomitant]
     Dosage: 600 MG, QD
     Route: 048
     Dates: end: 20100430
  12. BENET [Concomitant]
     Dosage: 17.5 MG, QD
     Route: 048
     Dates: start: 20040701, end: 20100430
  13. PREDNISOLONE [Concomitant]
     Dosage: 3 MG, QD
     Route: 048
     Dates: start: 20100315, end: 20100402
  14. UNSPECIFIED MEDICATION [Concomitant]
     Dosage: UNK
     Route: 048
     Dates: start: 20100215
  15. PREDNISOLONE [Concomitant]
     Dosage: 10 MG, QD
     Route: 048
     Dates: start: 20100403

REACTIONS (9)
  - LIVER DISORDER [None]
  - PYREXIA [None]
  - NEUTROPHIL COUNT DECREASED [None]
  - CYTOMEGALOVIRUS ENTEROCOLITIS [None]
  - DRUG RASH WITH EOSINOPHILIA AND SYSTEMIC SYMPTOMS [None]
  - ORAL MUCOSA EROSION [None]
  - DRUG ERUPTION [None]
  - DEVICE RELATED INFECTION [None]
  - LYMPHADENOPATHY MEDIASTINAL [None]
